FAERS Safety Report 13152386 (Version 2)
Quarter: 2017Q1

REPORT INFORMATION
  Report Type: Spontaneous
  Country: US (occurrence: US)
  Receive Date: 20170125
  Receipt Date: 20170215
  Transmission Date: 20170428
  Serious: Yes (Hospitalization)
  Sender: FDA-Public Use
  Company Number: US-BIOMARINAP-US-2017-112493

PATIENT
  Age: 21 Year
  Sex: Female
  Weight: 24.9 kg

DRUGS (3)
  1. VIMIZIM [Suspect]
     Active Substance: ELOSULFASE ALFA
     Indication: MUCOPOLYSACCHARIDOSIS IV
     Dosage: 50 MG, QW
     Route: 042
     Dates: start: 20150915
  2. PERCOCET                           /00446701/ [Concomitant]
     Active Substance: ACETAMINOPHEN\OXYCODONE HYDROCHLORIDE\OXYCODONE TEREPHTHALATE
     Indication: PAIN
  3. VALIUM [Concomitant]
     Active Substance: DIAZEPAM
     Indication: PAIN

REACTIONS (1)
  - Hip surgery [Recovering/Resolving]

NARRATIVE: CASE EVENT DATE: 20170117
